FAERS Safety Report 12879276 (Version 1)
Quarter: 2016Q4

REPORT INFORMATION
  Report Type: Spontaneous
  Country: NL (occurrence: NL)
  Receive Date: 20161025
  Receipt Date: 20161025
  Transmission Date: 20170207
  Serious: Yes (Other)
  Sender: FDA-Public Use
  Company Number: NL-CONCORDIA PHARMACEUTICALS INC.-GSH201610-005357

PATIENT
  Age: 84 Year
  Sex: Female

DRUGS (4)
  1. PREDNISOLON [Concomitant]
     Active Substance: PREDNISOLONE
  2. LANOXIN [Concomitant]
     Active Substance: DIGOXIN
  3. PLAQUENIL [Suspect]
     Active Substance: HYDROXYCHLOROQUINE SULFATE
     Indication: RHEUMATIC DISORDER
     Route: 048
     Dates: start: 20160823, end: 20160906
  4. ACETYLSALICYLZUUR [Concomitant]
     Active Substance: ASPIRIN

REACTIONS (2)
  - Swollen tongue [Recovered/Resolved]
  - Urticarial vasculitis [Recovering/Resolving]

NARRATIVE: CASE EVENT DATE: 20160825
